FAERS Safety Report 9941044 (Version 1)
Quarter: 2014Q1

REPORT INFORMATION
  Report Type: Report from Study
  Country: ES (occurrence: ES)
  Receive Date: 20140303
  Receipt Date: 20140303
  Transmission Date: 20141002
  Serious: Yes (Death, Hospitalization)
  Sender: FDA-Public Use
  Company Number: ES-TEVA-465790USA

PATIENT
  Age: 82 Year
  Sex: Female

DRUGS (4)
  1. BENDAMUSTINE [Suspect]
     Indication: PLASMA CELL MYELOMA
     Dosage: CYCLIC
     Route: 042
     Dates: start: 20131001, end: 20131204
  2. PREDNISONE [Suspect]
     Indication: PLASMA CELL MYELOMA
     Route: 065
     Dates: start: 20131001, end: 20131204
  3. CYCLOPHOSPHAMIDE [Suspect]
     Indication: PLASMA CELL MYELOMA
     Route: 065
     Dates: start: 20131230
  4. ACICLOVIR [Concomitant]
     Dosage: UNKNOWN/D
     Route: 065
     Dates: start: 20110930

REACTIONS (2)
  - Nosocomial infection [Fatal]
  - Upper limb fracture [Unknown]
